FAERS Safety Report 15589854 (Version 1)
Quarter: 2018Q4

REPORT INFORMATION
  Report Type: Spontaneous
  Country: US (occurrence: US)
  Receive Date: 20181106
  Receipt Date: 20181106
  Transmission Date: 20190205
  Serious: Yes (Other)
  Sender: FDA-Public Use
  Company Number: US-JNJFOC-20181032572

PATIENT
  Sex: Female

DRUGS (2)
  1. REMICADE [Suspect]
     Active Substance: INFLIXIMAB
     Indication: PRODUCT USED FOR UNKNOWN INDICATION
     Route: 042
     Dates: start: 20160406
  2. ARAVA [Concomitant]
     Active Substance: LEFLUNOMIDE
     Route: 065

REACTIONS (1)
  - Cardiac failure congestive [Unknown]
